FAERS Safety Report 4921319-1 (Version None)
Quarter: 2006Q1

REPORT INFORMATION
  Report Type: 
  Country: None (occurrence: None)
  Receive Date: 20060221
  Receipt Date: 20060214
  Transmission Date: 20060701
  Serious: Yes (Other)
  Sender: FDA-Public Use
  Company Number: 2006022625

PATIENT
  Age: 79 Year
  Sex: Male

DRUGS (9)
  1. VFEND [Suspect]
     Indication: PNEUMONIA ASPERGILLUS
     Dosage: 800 MG, ORAL
     Route: 048
     Dates: start: 20060208
  2. CABERGOLINE [Suspect]
     Indication: ILL-DEFINED DISORDER
     Dosage: ORAL
     Route: 048
  3. ITRACONAZOLE [Suspect]
     Indication: ILL-DEFINED DISORDER
     Dosage: 200 MG, ORAL
     Route: 048
     Dates: start: 20060206, end: 20060209
  4. EC DOPARL (BENSERAZIDE HYDROCHLORIDE, LEVODOPA) [Suspect]
     Indication: ILL-DEFINED DISORDER
     Dosage: ORAL
     Route: 048
  5. SULFAMETHOXAZOLE + TRIMETHOPRIM [Suspect]
     Indication: ILL-DEFINED DISORDER
     Dosage: ORAL
     Route: 047
  6. PREDNISOLONE [Suspect]
     Indication: ILL-DEFINED DISORDER
  7. NEORAL [Suspect]
     Indication: ILL-DEFINED DISORDER
     Dosage: ORAL
     Route: 048
  8. IPD (SUPLATAST TOSILATE) [Suspect]
     Indication: ILL-DEFINED DISORDER
     Dosage: ORAL
     Route: 048
  9. ROXATIDINE ACETATE HCL [Suspect]
     Indication: ILL-DEFINED DISORDER

REACTIONS (2)
  - DELIRIUM [None]
  - HALLUCINATION, VISUAL [None]
